FAERS Safety Report 20730646 (Version 4)
Quarter: 2022Q3

REPORT INFORMATION
  Report Type: Spontaneous
  Country: DE (occurrence: DE)
  Receive Date: 20220420
  Receipt Date: 20220731
  Transmission Date: 20221027
  Serious: Yes (Other)
  Sender: FDA-Public Use
  Company Number: DE-NOVARTISPH-PHHY2018DE139918

PATIENT
  Age: 71 Year
  Sex: Male

DRUGS (12)
  1. DEXAMETHASONE [Suspect]
     Active Substance: DEXAMETHASONE
     Indication: Plasma cell myeloma
     Dosage: 8 MG (FREQUENCY TEXT: NOT PROVIDED)
     Route: 048
     Dates: start: 20161104
  2. DEXAMETHASONE [Suspect]
     Active Substance: DEXAMETHASONE
     Dosage: 8 MG (FREQUENCY TEXT: NOT PROVIDED)
     Route: 048
     Dates: start: 20161111
  3. DEXAMETHASONE [Suspect]
     Active Substance: DEXAMETHASONE
     Dosage: 8 MG (FREQUENCY TEXT: NOT PROVIDED)
     Route: 048
     Dates: start: 20161118
  4. DEXAMETHASONE [Suspect]
     Active Substance: DEXAMETHASONE
     Dosage: 8 MG (FREQUENCY TEXT: NOT PROVIDED)
     Route: 048
     Dates: start: 20161125
  5. POMALIDOMIDE [Suspect]
     Active Substance: POMALIDOMIDE
     Indication: Plasma cell myeloma
     Dosage: 3 MG (FREQUENCY TEXT: NOT PROVIDED)
     Route: 048
     Dates: start: 20161104, end: 20161124
  6. POMALIDOMIDE [Suspect]
     Active Substance: POMALIDOMIDE
     Dosage: UNK (DOSE PRESCRIBED: 0 MG ACTUAL DOSE: 0 MG)
     Route: 048
     Dates: start: 20161125, end: 20161201
  7. POMALIDOMIDE [Suspect]
     Active Substance: POMALIDOMIDE
     Dosage: 3 MG
     Route: 048
     Dates: start: 20161202, end: 20161222
  8. POMALIDOMIDE [Suspect]
     Active Substance: POMALIDOMIDE
     Dosage: 3 MG
     Route: 048
     Dates: start: 20161223, end: 20161229
  9. POMALIDOMIDE [Suspect]
     Active Substance: POMALIDOMIDE
     Dosage: 3 MG
     Route: 048
     Dates: start: 20161223, end: 20161223
  10. POMALIDOMIDE [Suspect]
     Active Substance: POMALIDOMIDE
     Dosage: 3 MG
     Route: 048
     Dates: start: 20170112, end: 20170112
  11. POMALIDOMIDE [Suspect]
     Active Substance: POMALIDOMIDE
     Dosage: 3 MG
     Route: 048
     Dates: start: 20180420, end: 20180510
  12. POMALIDOMIDE [Suspect]
     Active Substance: POMALIDOMIDE
     Dosage: 3 MG
     Route: 048
     Dates: start: 20180518, end: 20180607

REACTIONS (2)
  - Peripheral motor neuropathy [Not Recovered/Not Resolved]
  - Peripheral sensory neuropathy [Not Recovered/Not Resolved]

NARRATIVE: CASE EVENT DATE: 20170112
